FAERS Safety Report 19547080 (Version 1)
Quarter: 2021Q3

REPORT INFORMATION
  Report Type: Report from Study
  Country: ES (occurrence: ES)
  Receive Date: 20210714
  Receipt Date: 20210714
  Transmission Date: 20211014
  Serious: Yes (Hospitalization, Other)
  Sender: FDA-Public Use
  Company Number: ES-AUROBINDO-AUR-APL-2020-053997

PATIENT
  Age: 75 Year
  Sex: Male

DRUGS (2)
  1. ERTAPENEM POWDER FOR CONCENTRATE FOR SOLUTION FOR INFUSION [Suspect]
     Active Substance: ERTAPENEM
     Indication: URINARY TRACT INFECTION
  2. ERTAPENEM POWDER FOR CONCENTRATE FOR SOLUTION FOR INFUSION [Suspect]
     Active Substance: ERTAPENEM
     Indication: UROSEPSIS
     Dosage: 1 GRAM, ONCE A DAY
     Route: 065

REACTIONS (4)
  - Somnolence [Recovered/Resolved]
  - Product use in unapproved indication [Unknown]
  - Neurotoxicity [Unknown]
  - Disorientation [Recovered/Resolved]
